FAERS Safety Report 9941594 (Version 1)
Quarter: 2014Q1

REPORT INFORMATION
  Report Type: Report from Study
  Country: US (occurrence: US)
  Receive Date: 20140303
  Receipt Date: 20140303
  Transmission Date: 20141002
  Serious: No
  Sender: FDA-Public Use
  Company Number: US-ABBVIE-13P-163-1038993-00

PATIENT
  Age: 53 Year
  Sex: Female

DRUGS (8)
  1. HUMIRA [Suspect]
     Indication: PSORIASIS
     Route: 058
     Dates: start: 20121222
  2. LEVEMIR [Concomitant]
     Indication: DIABETES MELLITUS
     Dosage: MORNING AND EVENING
  3. VICTOZA [Concomitant]
     Indication: DIABETES MELLITUS
     Dosage: 30 MINUTES BEFORE BREAKFAST
  4. SIMVASTATIN [Concomitant]
     Indication: BLOOD CHOLESTEROL
     Dosage: DAILY
  5. IRON [Concomitant]
     Indication: ANAEMIA
     Dosage: 1 DAILY
  6. VITAMIN D3 [Concomitant]
     Indication: PRODUCT USED FOR UNKNOWN INDICATION
     Dosage: DAILY
  7. METFORMIN [Concomitant]
     Indication: DIABETES MELLITUS
  8. GLYBURIDE [Concomitant]
     Indication: DIABETES MELLITUS

REACTIONS (1)
  - Injection site haemorrhage [Recovering/Resolving]
